FAERS Safety Report 9308439 (Version 4)
Quarter: 2013Q3

REPORT INFORMATION
  Report Type: Spontaneous
  Country: FR (occurrence: FR)
  Receive Date: 20130524
  Receipt Date: 20130809
  Transmission Date: 20140515
  Serious: Yes (Hospitalization, Other)
  Sender: FDA-Public Use
  Company Number: FR-JNJFOC-20130513377

PATIENT
  Age: 18 Year
  Sex: Female
  Weight: 47 kg

DRUGS (3)
  1. REMICADE [Suspect]
     Indication: CROHN^S DISEASE
     Route: 042
  2. REMICADE [Suspect]
     Indication: CROHN^S DISEASE
     Dosage: STARTED 13 MONTHS AGO
     Route: 042
     Dates: start: 20110304, end: 20120612
  3. IMUREL [Suspect]
     Indication: CROHN^S DISEASE
     Dosage: STARTED A YEAR AGO
     Route: 065
     Dates: start: 201101, end: 20120717

REACTIONS (1)
  - Lymphoid tissue hyperplasia [Recovered/Resolved]
